FAERS Safety Report 5505824-5 (Version None)
Quarter: 2007Q4

REPORT INFORMATION
  Report Type: 
  Country: None (occurrence: None)
  Receive Date: 20071102
  Receipt Date: 20071023
  Transmission Date: 20080405
  Serious: Yes (Hospitalization)
  Sender: FDA-Public Use
  Company Number: SE-PFIZER INC-2007089402

PATIENT
  Sex: Male

DRUGS (3)
  1. LYRICA [Suspect]
     Indication: PAIN
     Dates: start: 20070101, end: 20070725
  2. EDRONAX [Suspect]
     Dates: start: 20070701, end: 20070701
  3. TRYPTIZOL [Concomitant]

REACTIONS (1)
  - CEREBROVASCULAR ACCIDENT [None]
